FAERS Safety Report 9970014 (Version 1)
Quarter: 2014Q1

REPORT INFORMATION
  Report Type: Spontaneous
  Country: BE (occurrence: None)
  Receive Date: 20140304
  Receipt Date: 20140304
  Transmission Date: 20141002
  Serious: Yes (Hospitalization, Other)
  Sender: FDA-Public Use
  Company Number: 7270332

PATIENT
  Sex: Male

DRUGS (1)
  1. LEVOTHYROXINE [Suspect]
     Indication: THYROIDECTOMY
     Dosage: PRODUCT TAKEN BY MOHTER

REACTIONS (6)
  - Congenital hyperthyroidism [None]
  - Tricuspid valve incompetence [None]
  - Tachycardia foetal [None]
  - Cardiomegaly [None]
  - Bone formation increased [None]
  - Foetal exposure during pregnancy [None]
